FAERS Safety Report 8274811-9 (Version None)
Quarter: 2012Q2

REPORT INFORMATION
  Report Type: 
  Country: None (occurrence: None)
  Receive Date: 20120411
  Receipt Date: 20120403
  Transmission Date: 20120825
  Serious: Yes (Other)
  Sender: FDA-Public Use
  Company Number: DE-JNJFOC-20120202966

PATIENT
  Sex: Male
  Weight: 73 kg

DRUGS (4)
  1. BISOPROLOL FUMARATE [Concomitant]
     Route: 048
  2. DURAGESIC-100 [Suspect]
     Route: 062
  3. DURAGESIC-100 [Suspect]
     Indication: PRODUCT USED FOR UNKNOWN INDICATION
     Route: 062
     Dates: start: 20120202, end: 20120202
  4. ATACAND [Concomitant]
     Route: 048

REACTIONS (5)
  - PALPITATIONS [None]
  - NAUSEA [None]
  - ABDOMINAL PAIN UPPER [None]
  - HYPERTENSION [None]
  - INCORRECT DOSE ADMINISTERED [None]
